FAERS Safety Report 5773518-7 (Version None)
Quarter: 2008Q2

REPORT INFORMATION
  Report Type: 
  Country: None (occurrence: None)
  Receive Date: 20080616
  Receipt Date: 20080609
  Transmission Date: 20081010
  Serious: Yes (Other)
  Sender: FDA-Public Use
  Company Number: DE-WYE-G01153908

PATIENT
  Sex: Female

DRUGS (3)
  1. VENLAFAXINE HCL [Suspect]
     Indication: DEPRESSION
     Route: 048
     Dates: start: 20070611, end: 20071016
  2. VENLAFAXINE HCL [Suspect]
     Route: 048
     Dates: start: 20071017, end: 20071101
  3. STILNOX [Concomitant]
     Dosage: HALF A TABLET IF REQUIRED
     Route: 048

REACTIONS (2)
  - BLINDNESS UNILATERAL [None]
  - THROMBOSIS [None]
